FAERS Safety Report 11356720 (Version 1)
Quarter: 2015Q3

REPORT INFORMATION
  Report Type: Spontaneous
  Country: US (occurrence: US)
  Receive Date: 20150803
  Receipt Date: 20150803
  Transmission Date: 20151125
  Serious: No
  Sender: FDA-Public Use
  Company Number: US-ELI_LILLY_AND_COMPANY-US201210001803

PATIENT
  Age: 7 Year
  Sex: Male

DRUGS (1)
  1. STRATTERA [Suspect]
     Active Substance: ATOMOXETINE HYDROCHLORIDE
     Indication: ATTENTION DEFICIT/HYPERACTIVITY DISORDER
     Dosage: 18 MG, UNKNOWN
     Route: 065
     Dates: start: 201208

REACTIONS (11)
  - Incorrect dose administered [Unknown]
  - Wrong technique in product usage process [Unknown]
  - Stress [Unknown]
  - Frustration [Unknown]
  - Dysphagia [Unknown]
  - Foreign body [Unknown]
  - Product physical issue [Unknown]
  - Product taste abnormal [Unknown]
  - Disturbance in attention [Unknown]
  - Depressed mood [Unknown]
  - Retching [Unknown]
